FAERS Safety Report 18572578 (Version 1)
Quarter: 2020Q4

REPORT INFORMATION
  Report Type: Spontaneous
  Country: FI (occurrence: FI)
  Receive Date: 20201202
  Receipt Date: 20201202
  Transmission Date: 20210114
  Serious: Yes (Life-Threatening, Other)
  Sender: FDA-Public Use
  Company Number: FI-JNJFOC-20201148454

PATIENT
  Age: 71 Year
  Sex: Male

DRUGS (2)
  1. AMIODARONE [Concomitant]
     Active Substance: AMIODARONE
     Indication: ARRHYTHMIA
  2. SERENASE (HALOPERIDOL) [Suspect]
     Active Substance: HALOPERIDOL
     Indication: DELIRIUM
     Route: 042

REACTIONS (3)
  - Cardiac arrest [Recovered/Resolved]
  - Incorrect dose administered [Unknown]
  - Fall [Unknown]
